FAERS Safety Report 9907363 (Version 1)
Quarter: 2014Q1

REPORT INFORMATION
  Report Type: Report from Study
  Country: US (occurrence: US)
  Receive Date: 20140218
  Receipt Date: 20140218
  Transmission Date: 20141002
  Serious: Yes (Other)
  Sender: FDA-Public Use
  Company Number: US-ABBVIE-14P-163-1200245-00

PATIENT
  Sex: Female

DRUGS (1)
  1. HUMIRA [Suspect]
     Indication: PSORIASIS
     Dates: start: 201103, end: 201301

REACTIONS (5)
  - Meniscus injury [Unknown]
  - Carpal tunnel syndrome [Unknown]
  - Loss of employment [Unknown]
  - Economic problem [Not Recovered/Not Resolved]
  - Psoriasis [Not Recovered/Not Resolved]
